FAERS Safety Report 7760742-7 (Version None)
Quarter: 2011Q3

REPORT INFORMATION
  Report Type: 
  Country: None (occurrence: None)
  Receive Date: 20110919
  Receipt Date: 20110821
  Transmission Date: 20111222
  Serious: Yes (Other)
  Sender: FDA-Public Use
  Company Number: US-BAYER-2011-078566

PATIENT
  Age: 19 Year
  Sex: Female
  Weight: 78 kg

DRUGS (2)
  1. ALEVE (CAPLET) [Suspect]
     Indication: BACK PAIN
  2. ALEVE (CAPLET) [Suspect]
     Indication: HEADACHE
     Dosage: 660 MG, ONCE
     Route: 048
     Dates: start: 20110821

REACTIONS (3)
  - VISION BLURRED [None]
  - VISUAL IMPAIRMENT [None]
  - EYE PAIN [None]
